FAERS Safety Report 4437726-X (Version None)
Quarter: 2004Q3

REPORT INFORMATION
  Report Type: 
  Country: None (occurrence: None)
  Receive Date: 20040831
  Receipt Date: 20030404
  Transmission Date: 20050211
  Serious: No
  Sender: FDA-Public Use
  Company Number: US-GLAXOSMITHKLINE-A0403437A

PATIENT
  Age: 70 Year
  Sex: Female

DRUGS (5)
  1. ZOVIRAX [Suspect]
     Dosage: 800MG PER DAY
     Route: 048
     Dates: start: 20030401
  2. CELEBREX [Concomitant]
  3. EVISTA [Concomitant]
  4. PRAVACHOL [Concomitant]
  5. VALTREX [Concomitant]
     Route: 048

REACTIONS (5)
  - BACK PAIN [None]
  - DRUG INEFFECTIVE [None]
  - FATIGUE [None]
  - HEADACHE [None]
  - PARAESTHESIA [None]
